FAERS Safety Report 7162830 (Version 3)
Quarter: 2017Q2

REPORT INFORMATION
  Report Type: Spontaneous
  Country: US (occurrence: US)
  Receive Date: 20091030
  Receipt Date: 20170619
  Transmission Date: 20170830
  Serious: Yes (Other)
  Sender: FDA-Public Use
  Company Number: US-ROCHE-653289

PATIENT
  Age: 54 Year
  Sex: Female

DRUGS (15)
  1. FISH OIL [Concomitant]
     Active Substance: FISH OIL
     Route: 065
  2. IRON [Concomitant]
     Active Substance: IRON
     Route: 065
  3. MORPHINE [Concomitant]
     Active Substance: MORPHINE
     Route: 065
  4. OXYCODONE [Concomitant]
     Active Substance: OXYCODONE
     Route: 065
  5. VYTORIN [Concomitant]
     Active Substance: EZETIMIBE\SIMVASTATIN
     Route: 065
  6. VITAMIN B12 [Concomitant]
     Active Substance: CYANOCOBALAMIN
     Route: 065
  7. FLEXERIL [Concomitant]
     Active Substance: CYCLOBENZAPRINE HYDROCHLORIDE
     Route: 065
  8. XANAX [Concomitant]
     Active Substance: ALPRAZOLAM
     Route: 065
  9. NEXIUM [Concomitant]
     Active Substance: ESOMEPRAZOLE MAGNESIUM
     Route: 065
  10. XELODA [Suspect]
     Active Substance: CAPECITABINE
     Dosage: 2 WEEKS ON AND 1 WEEK OFF
     Route: 048
  11. XELODA [Suspect]
     Active Substance: CAPECITABINE
     Route: 048
  12. METAMUCIL [Concomitant]
     Active Substance: PLANTAGO SEED
     Route: 065
  13. XELODA [Suspect]
     Active Substance: CAPECITABINE
     Indication: COLORECTAL CANCER
     Route: 048
  14. GOLD TREATMENT [Concomitant]
     Route: 065
  15. METHYLIN [Concomitant]
     Active Substance: METHYLPHENIDATE HYDROCHLORIDE
     Dosage: DRUG REPORTED AS METHYLINE
     Route: 065

REACTIONS (15)
  - Paraesthesia [Not Recovered/Not Resolved]
  - Carcinoembryonic antigen increased [Recovering/Resolving]
  - Vision blurred [Unknown]
  - Arthralgia [Not Recovered/Not Resolved]
  - Burning sensation [Unknown]
  - Skin necrosis [Not Recovered/Not Resolved]
  - Dysstasia [Unknown]
  - Arthralgia [Not Recovered/Not Resolved]
  - Hypoaesthesia [Not Recovered/Not Resolved]
  - Skin exfoliation [Not Recovered/Not Resolved]
  - Back pain [Not Recovered/Not Resolved]
  - Back pain [Not Recovered/Not Resolved]
  - Pain [Not Recovered/Not Resolved]
  - Constipation [Not Recovered/Not Resolved]
  - Pain in extremity [Not Recovered/Not Resolved]

NARRATIVE: CASE EVENT DATE: 200909
